FAERS Safety Report 14937660 (Version 2)
Quarter: 2018Q2

REPORT INFORMATION
  Report Type: Report from Study
  Country: US (occurrence: US)
  Receive Date: 20180525
  Receipt Date: 20180612
  Transmission Date: 20180711
  Serious: Yes (Hospitalization, Other)
  Sender: FDA-Public Use
  Company Number: PHEH2018US019860

PATIENT
  Sex: Female

DRUGS (2)
  1. ENTRESTO [Suspect]
     Active Substance: SACUBITRIL\VALSARTAN
     Indication: PRODUCT USED FOR UNKNOWN INDICATION
     Dosage: 1 DF (SACUBITRIL 24 MG/ VALSARTAN 26 MG), BID
     Route: 048
  2. ENTRESTO [Suspect]
     Active Substance: SACUBITRIL\VALSARTAN
     Dosage: 0.5 DF (SACUBITRIL 24 MG/ VALSARTAN 26 MG), BID (ONE IN THE MORNING AND HALF AT NIGHT)
     Route: 065

REACTIONS (7)
  - Wrong technique in product usage process [Unknown]
  - Underdose [Unknown]
  - Asthenia [Unknown]
  - Fatigue [Unknown]
  - Loss of consciousness [Unknown]
  - Dizziness [Unknown]
  - Hypotension [Unknown]
